FAERS Safety Report 13100637 (Version 1)
Quarter: 2017Q1

REPORT INFORMATION
  Report Type: Spontaneous
  Country: US (occurrence: US)
  Receive Date: 20170110
  Receipt Date: 20170110
  Transmission Date: 20170428
  Serious: No
  Sender: FDA-Public Use
  Company Number: None

PATIENT
  Age: 72 Year
  Sex: Female
  Weight: 77.18 kg

DRUGS (1)
  1. AFINITOR [Suspect]
     Active Substance: EVEROLIMUS
     Indication: CARCINOID TUMOUR PULMONARY
     Dosage: 10 MG DAILY FOR 28 DAYS PO
     Route: 048
     Dates: start: 20161214

REACTIONS (5)
  - Mouth ulceration [None]
  - Pruritus [None]
  - Rash [None]
  - Eyelid oedema [None]
  - Urticaria [None]
